FAERS Safety Report 6813987-4 (Version None)
Quarter: 2010Q3

REPORT INFORMATION
  Report Type: 
  Country: None (occurrence: None)
  Receive Date: 20100702
  Receipt Date: 20100304
  Transmission Date: 20110219
  Serious: Yes (Other)
  Sender: FDA-Public Use
  Company Number: US-ASTRAZENECA-2007UW02049

PATIENT
  Age: 48 Year
  Sex: Female
  Weight: 77.1 kg

DRUGS (15)
  1. SEROQUEL [Suspect]
     Indication: DEPRESSION
     Dosage: 150 MG - 200 MG
     Route: 048
     Dates: start: 20011201, end: 20030401
  2. SEROQUEL [Suspect]
     Route: 048
     Dates: start: 20020701
  3. SEROQUEL [Suspect]
     Dosage: 150 MG - 200 MG
     Route: 048
     Dates: start: 20041201, end: 20050401
  4. SEROQUEL [Suspect]
     Route: 048
     Dates: start: 20050222
  5. SEROQUEL [Suspect]
     Route: 048
     Dates: start: 20011211
  6. DEXATRIM [Concomitant]
     Indication: WEIGHT CONTROL
     Dates: start: 19800101
  7. METHADONE [Concomitant]
     Indication: BACK PAIN
     Route: 048
     Dates: start: 20060101
  8. CLONAZEPAM [Concomitant]
     Dates: start: 20011115
  9. PROZAC [Concomitant]
     Dosage: 20 MG 2 TABLET DAILY
     Dates: start: 20011211
  10. HYDROXYZINE [Concomitant]
     Dates: start: 20011121
  11. CYCLOBENZAPRINE [Concomitant]
     Dates: start: 20011116
  12. HYDROCODONE BITARTRATE AND ACETAMINOPHEN [Concomitant]
     Dates: start: 20011119
  13. OXYCODONE HCL AND ACETAMINOPHEN [Concomitant]
     Dosage: 5/325 DISPENSED
     Dates: start: 20011116
  14. SINGULAIR [Concomitant]
     Dates: start: 20061027
  15. TRAZODONE HYDROCHLORIDE [Concomitant]
     Dates: start: 20060510

REACTIONS (11)
  - ABNORMAL DREAMS [None]
  - BLOOD CHOLESTEROL INCREASED [None]
  - DIABETES MELLITUS INADEQUATE CONTROL [None]
  - DIABETIC GASTROPARESIS [None]
  - FEELING ABNORMAL [None]
  - HYPERCHOLESTEROLAEMIA [None]
  - HYPERLIPIDAEMIA [None]
  - OBESITY [None]
  - PLASTIC SURGERY TO THE FACE [None]
  - SURGERY [None]
  - TYPE 2 DIABETES MELLITUS [None]
